FAERS Safety Report 4675212-2 (Version None)
Quarter: 2005Q2

REPORT INFORMATION
  Report Type: 
  Country: None (occurrence: None)
  Receive Date: 20050526
  Receipt Date: 20050505
  Transmission Date: 20051028
  Serious: Yes (Life-Threatening, Hospitalization)
  Sender: FDA-Public Use
  Company Number: CAR_0017_2005

PATIENT
  Age: 44 Year
  Sex: Female

DRUGS (1)
  1. DICLOFENAC [Suspect]
     Indication: SCIATICA

REACTIONS (15)
  - ANGIOIMMUNOBLASTIC T-CELL LYMPHOMA [None]
  - BLOOD CREATININE INCREASED [None]
  - BLOOD IMMUNOGLOBULIN E INCREASED [None]
  - CRACKLES LUNG [None]
  - FACE OEDEMA [None]
  - GAMMOPATHY [None]
  - HEPATOMEGALY [None]
  - LUNG INFILTRATION [None]
  - LYMPHADENOPATHY [None]
  - PYREXIA [None]
  - RASH MACULO-PAPULAR [None]
  - RASH PRURITIC [None]
  - RESPIRATORY DISTRESS [None]
  - SKIN EXFOLIATION [None]
  - WHITE BLOOD CELL COUNT INCREASED [None]
